FAERS Safety Report 14064160 (Version 1)
Quarter: 2017Q4

REPORT INFORMATION
  Report Type: Spontaneous
  Country: SI (occurrence: SI)
  Receive Date: 20171009
  Receipt Date: 20171009
  Transmission Date: 20180321
  Serious: Yes (Hospitalization, Other)
  Sender: FDA-Public Use
  Company Number: SI-BAYER-2017-186616

PATIENT
  Age: 81 Year
  Sex: Female
  Weight: 46 kg

DRUGS (26)
  1. CONCOR [Concomitant]
     Active Substance: BISOPROLOL FUMARATE
     Dosage: 5 MG, BID
  2. TONOCARDIN [Concomitant]
     Active Substance: DOXAZOSIN MESYLATE
     Dosage: 4 MG, HS
  3. HALOPERIDOL. [Concomitant]
     Active Substance: HALOPERIDOL
     Dosage: UNK
  4. MIDAZOLAM [Concomitant]
     Active Substance: MIDAZOLAM HYDROCHLORIDE
     Dosage: 7.5 MG, PRN
  5. AMLOPIN [Concomitant]
     Active Substance: AMLODIPINE BESYLATE
     Dosage: 5 MG, BID
  6. XARELTO [Suspect]
     Active Substance: RIVAROXABAN
     Indication: ATRIAL FIBRILLATION
     Dosage: 20 MG, QD
     Dates: start: 20170714
  7. PLIVIT D3 [Concomitant]
     Active Substance: CHOLECALCIFEROL
     Dosage: 70 DROPS
  8. VALSARTAN. [Concomitant]
     Active Substance: VALSARTAN
     Dosage: 320 MG, OM
  9. ANALGIN (METAMIZOLE SODIUM) [Concomitant]
     Active Substance: METAMIZOLE SODIUM
     Dosage: 500 MG, BID
  10. XARELTO [Suspect]
     Active Substance: RIVAROXABAN
     Dosage: 15 MG, HS
  11. PARACETAMOL [Concomitant]
     Active Substance: ACETAMINOPHEN
     Dosage: 100 MG, UNK
     Route: 048
  12. ASPIRIN PROTECT 100 MG [Suspect]
     Active Substance: ASPIRIN
     Dosage: 100 MG, QD
     Dates: end: 20170714
  13. MONOSAN [Concomitant]
     Dosage: 20 MG, BID
  14. PANTOPRAZOLE SODIUM. [Concomitant]
     Active Substance: PANTOPRAZOLE SODIUM
     Dosage: 40 MG, OM
  15. ROSUVASTATIN. [Concomitant]
     Active Substance: ROSUVASTATIN
     Dosage: 10 MG, HS
  16. FRAGMIN [Concomitant]
     Active Substance: DALTEPARIN SODIUM
     Dosage: 5000 U/24 HOURS
  17. INSULIN [Concomitant]
     Active Substance: INSULIN NOS
     Indication: BLOOD GLUCOSE ABNORMAL
     Dosage: UNK
  18. HEPARIN [Concomitant]
     Active Substance: HEPARIN SODIUM
     Dosage: UNK
  19. ASPIRIN PROTECT 100 MG [Suspect]
     Active Substance: ASPIRIN
     Dosage: 100 MG, QD
  20. MABTHERA [Suspect]
     Active Substance: RITUXIMAB
     Dosage: 1000 MG, ONCE
     Route: 042
     Dates: start: 20170621, end: 20170621
  21. MEDROL [Concomitant]
     Active Substance: METHYLPREDNISOLONE
     Dosage: 500 MG IN 250 ML 0.9% NACL
     Route: 042
  22. MEDROL [Concomitant]
     Active Substance: METHYLPREDNISOLONE
     Dosage: 48 MG, QD
     Route: 048
     Dates: start: 20170710
  23. TONOCARDIN [Concomitant]
     Active Substance: DOXAZOSIN MESYLATE
     Dosage: 2 MG, HS
  24. MABTHERA [Suspect]
     Active Substance: RITUXIMAB
     Dosage: 1000 MG, ONCE
     Dates: start: 20170710, end: 20170710
  25. MONOSAN [Concomitant]
     Dosage: 40 MG, BID
  26. TAVEGYL [Concomitant]
     Active Substance: CLEMASTINE FUMARATE
     Dosage: 1 DF, UNK

REACTIONS (14)
  - Flatulence [None]
  - Abdominal pain [None]
  - Dizziness [None]
  - Oedema peripheral [None]
  - Subcutaneous haematoma [None]
  - Anaemia [None]
  - Chest pain [None]
  - Acute coronary syndrome [None]
  - Nausea [None]
  - Asthenia [None]
  - Pancytopenia [None]
  - Contusion [Recovered/Resolved]
  - Pallor [None]
  - Weight decreased [None]

NARRATIVE: CASE EVENT DATE: 201707
